FAERS Safety Report 23968074 (Version 1)
Quarter: 2024Q2

REPORT INFORMATION
  Report Type: Spontaneous
  Country: US (occurrence: US)
  Receive Date: 20240612
  Receipt Date: 20240612
  Transmission Date: 20240716
  Serious: No
  Sender: FDA-Public Use
  Company Number: US-PERRIGO-23US008132

PATIENT
  Age: 76 Year
  Sex: Female
  Weight: 61.224 kg

DRUGS (3)
  1. DICLOFENAC SODIUM [Suspect]
     Active Substance: DICLOFENAC\DICLOFENAC SODIUM
     Indication: Pain
     Dosage: FINGERTIP AMOUNT 1 TO 2 TIMES DAILY
     Route: 061
     Dates: start: 202304
  2. DICLOFENAC SODIUM [Suspect]
     Active Substance: DICLOFENAC\DICLOFENAC SODIUM
     Dosage: UNKNOWN, UNKNOWN
     Route: 061
     Dates: start: 2021, end: 2021
  3. DICLOFENAC SODIUM [Suspect]
     Active Substance: DICLOFENAC\DICLOFENAC SODIUM
     Dosage: UNKNOWN, UNKNOWN
     Route: 061
     Dates: start: 2022, end: 2022

REACTIONS (2)
  - Product administered at inappropriate site [Unknown]
  - Incorrect product administration duration [Unknown]

NARRATIVE: CASE EVENT DATE: 20230401
